FAERS Safety Report 7551389-6 (Version None)
Quarter: 2011Q2

REPORT INFORMATION
  Report Type: 
  Country: None (occurrence: None)
  Receive Date: 20110616
  Receipt Date: 20110607
  Transmission Date: 20111010
  Serious: Yes (Other)
  Sender: FDA-Public Use
  Company Number: US-ROCHE-770319

PATIENT
  Sex: Male
  Weight: 2.3 kg

DRUGS (4)
  1. ZYRTEC [Concomitant]
     Indication: SEASONAL ALLERGY
  2. PRILOSEC [Concomitant]
  3. RIBAVIRIN [Suspect]
     Route: 064
     Dates: start: 20090716, end: 20100101
  4. PEGINTERFERON ALFA-2A [Suspect]
     Route: 064
     Dates: start: 20090716, end: 20100101

REACTIONS (3)
  - UMBILICAL CORD VASCULAR DISORDER [None]
  - JAUNDICE [None]
  - HAEMOGLOBIN DECREASED [None]
